FAERS Safety Report 14337671 (Version 1)
Quarter: 2017Q4

REPORT INFORMATION
  Report Type: Spontaneous
  Country: US (occurrence: US)
  Receive Date: 20171229
  Receipt Date: 20171229
  Transmission Date: 20180321
  Serious: No
  Sender: FDA-Public Use
  Company Number: US-ELI_LILLY_AND_COMPANY-US201712010009

PATIENT
  Sex: Male

DRUGS (1)
  1. TRULICITY [Suspect]
     Active Substance: DULAGLUTIDE
     Indication: TYPE 2 DIABETES MELLITUS
     Dosage: 1.5 MG, UNKNOWN
     Route: 058
     Dates: start: 201711

REACTIONS (8)
  - Pruritus [Not Recovered/Not Resolved]
  - Acne [Not Recovered/Not Resolved]
  - Acne [Unknown]
  - Staphylococcal infection [Unknown]
  - Folliculitis [Unknown]
  - Erythema [Not Recovered/Not Resolved]
  - Rash [Not Recovered/Not Resolved]
  - Dandruff [Unknown]

NARRATIVE: CASE EVENT DATE: 201711
